FAERS Safety Report 17994783 (Version 1)
Quarter: 2020Q3

REPORT INFORMATION
  Report Type: Spontaneous
  Country: US (occurrence: US)
  Receive Date: 20200708
  Receipt Date: 20200708
  Transmission Date: 20201103
  Serious: Yes (Life-Threatening, Hospitalization)
  Sender: FDA-Public Use
  Company Number: US-MYLANLABS-2020M1061654

PATIENT
  Age: 5 Month
  Sex: Male

DRUGS (7)
  1. MIDAZOLAM. [Suspect]
     Active Substance: MIDAZOLAM
     Indication: SEDATIVE THERAPY
     Dosage: 0.06 MILLIGRAM/KILOGRAM, QH, DRIP
     Route: 041
  2. MORPHINE [Suspect]
     Active Substance: MORPHINE
     Dosage: MULTIPLE BOLUS DOSES OF MORPHINE
     Route: 065
  3. LORAZEPAM. [Suspect]
     Active Substance: LORAZEPAM
     Indication: SEDATIVE THERAPY
     Dosage: 0.6 MILLIGRAM/KILOGRAM, Q6H
  4. RISPERIDONE. [Suspect]
     Active Substance: RISPERIDONE
     Indication: DELIRIUM
     Dosage: 0.13 MG/AT 0200 HRS, ON FOLLOWING NIGHT
     Route: 065
  5. MIDAZOLAM. [Suspect]
     Active Substance: MIDAZOLAM
     Dosage: MULTIPLE BOLUS DOSES OF MIDAZOLAM
     Route: 040
  6. MORPHINE [Suspect]
     Active Substance: MORPHINE
     Indication: ANALGESIC THERAPY
     Dosage: DRIP; MAXIMUM DOSE OF 0.09 MG/KG/HOUR
  7. DEXMEDETOMIDINE. [Suspect]
     Active Substance: DEXMEDETOMIDINE
     Indication: SEDATIVE THERAPY
     Dosage: 1 MICROGRAM/KILOGRAM, QH

REACTIONS (4)
  - Bradycardia [Recovering/Resolving]
  - Cardiac arrest [Recovering/Resolving]
  - Off label use [Unknown]
  - Delirium [Recovering/Resolving]
